FAERS Safety Report 14671303 (Version 1)
Quarter: 2018Q1

REPORT INFORMATION
  Report Type: Spontaneous
  Country: FR (occurrence: FR)
  Receive Date: 20180323
  Receipt Date: 20180323
  Transmission Date: 20180509
  Serious: Yes (Other)
  Sender: FDA-Public Use
  Company Number: FR-MERCK KGAA-2044344

PATIENT
  Age: 67 Year
  Sex: Male
  Weight: 100 kg

DRUGS (4)
  1. ELIQUIS [Concomitant]
     Active Substance: APIXABAN
     Route: 048
  2. NOVOTHYROX [Suspect]
     Active Substance: LEVOTHYROXINE SODIUM
     Indication: HYPOTHYROIDISM
     Route: 048
     Dates: start: 20170719, end: 20171225
  3. CARDENSIEL [Concomitant]
     Active Substance: BISOPROLOL FUMARATE
     Route: 048
  4. EUTHYROX [Concomitant]
     Active Substance: LEVOTHYROXINE SODIUM
     Route: 048
     Dates: start: 20171225

REACTIONS (5)
  - Insomnia [Recovering/Resolving]
  - Blood thyroid stimulating hormone normal [Recovered/Resolved]
  - Irritability [Recovering/Resolving]
  - Vertigo [Recovering/Resolving]
  - Balance disorder [Not Recovered/Not Resolved]

NARRATIVE: CASE EVENT DATE: 20170905
